FAERS Safety Report 24797769 (Version 1)
Quarter: 2025Q1

REPORT INFORMATION
  Report Type: Spontaneous
  Country: US (occurrence: US)
  Receive Date: 20250102
  Receipt Date: 20250102
  Transmission Date: 20250409
  Serious: No
  Sender: SANOFI AVENTIS
  Company Number: US-SA-2024SA385756

PATIENT
  Age: 59 Year
  Sex: Male
  Weight: 104.09 kg

DRUGS (3)
  1. DUPIXENT [Suspect]
     Active Substance: DUPILUMAB
     Indication: Dermatitis atopic
     Dosage: 300 MG, QOW
     Route: 058
  2. CELEBREX [Concomitant]
     Active Substance: CELECOXIB
  3. TOPIRAMATE [Concomitant]
     Active Substance: TOPIRAMATE

REACTIONS (3)
  - Dermatitis atopic [Not Recovered/Not Resolved]
  - Pruritus [Not Recovered/Not Resolved]
  - Product dose omission in error [Not Recovered/Not Resolved]

NARRATIVE: CASE EVENT DATE: 20240101
